FAERS Safety Report 7399191-2 (Version None)
Quarter: 2011Q1

REPORT INFORMATION
  Report Type: 
  Country: None (occurrence: None)
  Receive Date: 20110328
  Receipt Date: 20110316
  Transmission Date: 20110831
  Serious: Yes (Hospitalization)
  Sender: FDA-Public Use
  Company Number: DSM-2011-00311

PATIENT
  Age: 82 Year
  Sex: Female

DRUGS (3)
  1. AMLODIPINE BESYLATE AND OLMESARTAN MEDOXOMIL [Suspect]
     Indication: HYPERTENSION
     Dosage: 1 DOSAGE FORM (1 IN 1 D),ORAL
     Route: 048
     Dates: start: 20091029, end: 20100901
  2. PRAZEPAM [Concomitant]
  3. NEBIVOLOL HCL [Concomitant]

REACTIONS (5)
  - HYPOKALAEMIA [None]
  - METABOLIC ACIDOSIS [None]
  - COLITIS [None]
  - DEHYDRATION [None]
  - HELICOBACTER INFECTION [None]
